FAERS Safety Report 17872009 (Version 2)
Quarter: 2020Q2

REPORT INFORMATION
  Report Type: Spontaneous
  Country: CA (occurrence: CA)
  Receive Date: 20200608
  Receipt Date: 20200611
  Transmission Date: 20200714
  Serious: Yes (Other)
  Sender: FDA-Public Use
  Company Number: CA-CELLTRION INC.-2020CA022255

PATIENT

DRUGS (8)
  1. INFLECTRA [Suspect]
     Active Substance: INFLIXIMAB-DYYB
     Indication: COLITIS ULCERATIVE
     Dosage: 5 MG/KG (Q 0, 2, 6,WEEKS, THEN EVERY 8,WEEKS)
     Route: 042
     Dates: start: 20200420
  2. TYLENOL [Concomitant]
     Active Substance: ACETAMINOPHEN
     Indication: PREMEDICATION
     Dosage: 325-650 MG
  3. METHYLPREDNISOLONE. [Concomitant]
     Active Substance: METHYLPREDNISOLONE
     Indication: PREMEDICATION
     Dosage: 20 MILLIGRAM
     Dates: start: 20200605
  4. INFLECTRA [Suspect]
     Active Substance: INFLIXIMAB-DYYB
     Dosage: 5 MG/KG (Q 0, 2, 6,WEEKS, THEN EVERY 8,WEEKS)
     Route: 042
     Dates: start: 20200506
  5. INFLECTRA [Suspect]
     Active Substance: INFLIXIMAB-DYYB
     Dosage: 5 MG/KG (Q 0, 2, 6,WEEKS, THEN EVERY 8,WEEKS)
     Route: 042
     Dates: start: 20200506
  6. SOLU-MEDROL [Concomitant]
     Active Substance: METHYLPREDNISOLONE SODIUM SUCCINATE
     Indication: PREMEDICATION
     Dosage: 20 MG
     Route: 042
  7. ACETAMINOPHEN. [Concomitant]
     Active Substance: ACETAMINOPHEN
     Indication: PREMEDICATION
     Dosage: 1000 MILLIGRAM
     Dates: start: 20200605
  8. CORTISONE [Concomitant]
     Active Substance: CORTISONE
     Dosage: UNK

REACTIONS (15)
  - Body temperature increased [Unknown]
  - Anal incontinence [Unknown]
  - Mobility decreased [Unknown]
  - Malaise [Unknown]
  - Anxiety [Unknown]
  - Rectal haemorrhage [Unknown]
  - Haematochezia [Unknown]
  - Arthralgia [Unknown]
  - Blood pressure fluctuation [Unknown]
  - Pain [Unknown]
  - Asthenia [Unknown]
  - Myalgia [Unknown]
  - Musculoskeletal pain [Unknown]
  - Pain in extremity [Unknown]
  - Chills [Unknown]

NARRATIVE: CASE EVENT DATE: 20200605
